FAERS Safety Report 8594665-0 (Version None)
Quarter: 2012Q3

REPORT INFORMATION
  Report Type: 
  Country: None (occurrence: None)
  Receive Date: 20120815
  Receipt Date: 20120809
  Transmission Date: 20120928
  Serious: No
  Sender: FDA-Public Use
  Company Number: US-PFIZER INC-2012195262

PATIENT
  Age: 81 Year
  Sex: Female
  Weight: 51.247 kg

DRUGS (7)
  1. OMEPRAZOLE [Concomitant]
     Dosage: UNK, 1X/DAY
  2. VITAMIN D [Concomitant]
     Dosage: 500 UNK, UNK
  3. DOCUSATE [Concomitant]
     Indication: CONSTIPATION
     Dosage: UNK
  4. ACETAMINOPHEN [Concomitant]
     Dosage: 1000 MG(TWO TABLETS OF 500MG), 2X/DAY
  5. LEVOXYL [Suspect]
     Indication: HYPOTHYROIDISM
     Dosage: 50 UG, 1X/DAY
     Route: 048
     Dates: start: 20080101
  6. CALCIUM [Concomitant]
     Dosage: 1000 UNK, UNK
  7. VITAMIN B-12 [Concomitant]
     Dosage: UNK

REACTIONS (3)
  - BLOOD TRIGLYCERIDES INCREASED [None]
  - HYPERTENSION [None]
  - BLOOD CHOLESTEROL INCREASED [None]
